FAERS Safety Report 11651321 (Version 1)
Quarter: 2015Q4

REPORT INFORMATION
  Report Type: Spontaneous
  Country: JP (occurrence: JP)
  Receive Date: 20151022
  Receipt Date: 20151022
  Transmission Date: 20160304
  Serious: Yes (Hospitalization, Other)
  Sender: FDA-Public Use
  Company Number: JP-ROCHE-1649036

PATIENT
  Age: 56 Year
  Sex: Male

DRUGS (56)
  1. GRAN [Suspect]
     Active Substance: FILGRASTIM
     Dosage: QD
     Route: 041
     Dates: start: 20150128, end: 20150128
  2. GRAN [Suspect]
     Active Substance: FILGRASTIM
     Dosage: QD
     Route: 041
     Dates: start: 20150211, end: 20150211
  3. GRAN [Suspect]
     Active Substance: FILGRASTIM
     Dosage: QD
     Route: 041
     Dates: start: 20150218, end: 20150218
  4. GRAN [Suspect]
     Active Substance: FILGRASTIM
     Dosage: QD
     Route: 041
     Dates: start: 20150312, end: 20150312
  5. GRAN [Suspect]
     Active Substance: FILGRASTIM
     Dosage: QD
     Route: 041
     Dates: start: 20150316, end: 20150316
  6. ADRIACIN [Suspect]
     Active Substance: DOXORUBICIN HYDROCHLORIDE
     Indication: ADULT T-CELL LYMPHOMA/LEUKAEMIA
     Route: 051
     Dates: start: 20150129
  7. ADRIACIN [Suspect]
     Active Substance: DOXORUBICIN HYDROCHLORIDE
     Route: 051
     Dates: start: 20150217
  8. ADRIACIN [Suspect]
     Active Substance: DOXORUBICIN HYDROCHLORIDE
     Route: 051
     Dates: start: 20150318, end: 20150320
  9. DENOSINE [Suspect]
     Active Substance: GANCICLOVIR
     Route: 041
     Dates: start: 20150224, end: 20150313
  10. ASPARA POTASSIUM [Concomitant]
     Active Substance: POTASSIUM ASPARTATE
  11. POTASSIUM CHLORIDE. [Concomitant]
     Active Substance: POTASSIUM CHLORIDE
  12. GRAN [Suspect]
     Active Substance: FILGRASTIM
     Dosage: QD
     Route: 041
     Dates: start: 20150223, end: 20150223
  13. GRAN [Suspect]
     Active Substance: FILGRASTIM
     Dosage: QD
     Route: 041
     Dates: start: 20150304, end: 20150304
  14. RANIMUSTINE [Suspect]
     Active Substance: RANIMUSTINE
     Indication: ADULT T-CELL LYMPHOMA/LEUKAEMIA
     Route: 051
     Dates: start: 20150129, end: 20150129
  15. VINCRISTINE SULFATE. [Suspect]
     Active Substance: VINCRISTINE SULFATE
     Indication: ADULT T-CELL LYMPHOMA/LEUKAEMIA
     Route: 065
     Dates: start: 20150129, end: 20150129
  16. VINCRISTINE SULFATE. [Suspect]
     Active Substance: VINCRISTINE SULFATE
     Route: 065
     Dates: start: 20150318, end: 20150320
  17. GRAN [Suspect]
     Active Substance: FILGRASTIM
     Dosage: QD
     Route: 041
     Dates: start: 20150308, end: 20150308
  18. GRAN [Suspect]
     Active Substance: FILGRASTIM
     Dosage: QD
     Route: 041
     Dates: start: 20150310, end: 20150310
  19. RANIMUSTINE [Suspect]
     Active Substance: RANIMUSTINE
     Route: 051
     Dates: start: 20150217, end: 20150217
  20. RANIMUSTINE [Suspect]
     Active Substance: RANIMUSTINE
     Route: 051
     Dates: start: 20150318, end: 20150320
  21. PREDNISOLONE. [Suspect]
     Active Substance: PREDNISOLONE
     Indication: ADULT T-CELL LYMPHOMA/LEUKAEMIA
     Dosage: QD
     Route: 048
     Dates: start: 20150129, end: 20150129
  22. PREDNISOLONE. [Suspect]
     Active Substance: PREDNISOLONE
     Dosage: QD
     Route: 048
     Dates: start: 20150318, end: 20150320
  23. CYCLOPHOSPHAMIDE MONOHYDRATE [Suspect]
     Active Substance: CYCLOPHOSPHAMIDE
     Route: 065
     Dates: start: 20150217, end: 20150217
  24. ETOPOSIDE. [Suspect]
     Active Substance: ETOPOSIDE
     Route: 065
     Dates: start: 20150318, end: 20150320
  25. ALOXI [Concomitant]
     Active Substance: PALONOSETRON HYDROCHLORIDE
     Route: 065
  26. SODIUM BICARBONATE. [Concomitant]
     Active Substance: SODIUM BICARBONATE
  27. PREDNISOLONE. [Suspect]
     Active Substance: PREDNISOLONE
     Dosage: QD
     Route: 048
     Dates: end: 20150331
  28. VINDESINE SULFATE [Suspect]
     Active Substance: VINDESINE SULFATE
     Indication: LEUKAEMIA
     Route: 065
     Dates: start: 20150129, end: 20150129
  29. CARBOPLATIN. [Suspect]
     Active Substance: CARBOPLATIN
     Indication: ADULT T-CELL LYMPHOMA/LEUKAEMIA
     Route: 065
     Dates: start: 20150129, end: 20150129
  30. RASURITEK [Concomitant]
     Active Substance: RASBURICASE
     Route: 065
  31. CALCICOL [Concomitant]
     Active Substance: CALCIUM GLUCONATE
  32. NEUTROGIN [Concomitant]
     Active Substance: LENOGRASTIM
  33. CYLOCIDE [Concomitant]
     Active Substance: CYTARABINE
     Route: 065
  34. RANIMUSTINE [Suspect]
     Active Substance: RANIMUSTINE
     Route: 051
     Dates: end: 20150331
  35. CYCLOPHOSPHAMIDE MONOHYDRATE [Suspect]
     Active Substance: CYCLOPHOSPHAMIDE
     Indication: ADULT T-CELL LYMPHOMA/LEUKAEMIA
     Route: 065
     Dates: start: 20150129, end: 20150129
  36. VINDESINE SULFATE [Suspect]
     Active Substance: VINDESINE SULFATE
     Route: 065
     Dates: start: 20150217, end: 20150217
  37. ETOPOSIDE. [Suspect]
     Active Substance: ETOPOSIDE
     Route: 065
     Dates: start: 20150217, end: 20150217
  38. CASPOFUNGIN ACETATE [Suspect]
     Active Substance: CASPOFUNGIN ACETATE
     Indication: ASPERGILLOMA
     Dosage: QD
     Route: 041
     Dates: start: 20141009, end: 20141104
  39. FOSCARNET SODIUM. [Suspect]
     Active Substance: FOSCARNET SODIUM
     Indication: CYTOMEGALOVIRUS INFECTION
     Route: 051
     Dates: start: 20150314, end: 20150421
  40. FUROSEMIDE. [Concomitant]
     Active Substance: FUROSEMIDE
  41. ELCATONIN [Concomitant]
     Active Substance: ELCATONIN
     Route: 065
  42. PRIMPERAN [Concomitant]
     Active Substance: METOCLOPRAMIDE HYDROCHLORIDE
  43. VINCRISTINE SULFATE. [Suspect]
     Active Substance: VINCRISTINE SULFATE
     Route: 065
     Dates: start: 20150217, end: 20150217
  44. CYCLOPHOSPHAMIDE MONOHYDRATE [Suspect]
     Active Substance: CYCLOPHOSPHAMIDE
     Route: 065
     Dates: start: 20150318, end: 20150320
  45. GRAN [Suspect]
     Active Substance: FILGRASTIM
     Dosage: QD
     Route: 041
     Dates: start: 20150130, end: 20150130
  46. DENOSINE [Suspect]
     Active Substance: GANCICLOVIR
     Indication: CYTOMEGALOVIRUS CHORIORETINITIS
     Route: 041
     Dates: start: 20150218, end: 20150224
  47. ETOPOSIDE. [Suspect]
     Active Substance: ETOPOSIDE
     Indication: ADULT T-CELL LYMPHOMA/LEUKAEMIA
     Route: 065
     Dates: start: 20150129, end: 20150129
  48. CARBOPLATIN. [Suspect]
     Active Substance: CARBOPLATIN
     Route: 065
     Dates: start: 20150217, end: 20150217
  49. CARBOPLATIN. [Suspect]
     Active Substance: CARBOPLATIN
     Route: 065
     Dates: start: 20150318, end: 20150320
  50. EMEND [Concomitant]
     Active Substance: APREPITANT
     Route: 065
  51. GRAN [Suspect]
     Active Substance: FILGRASTIM
     Indication: NEUTROPENIA
     Dosage: QD
     Route: 041
     Dates: start: 20150126, end: 20150126
  52. GRAN [Suspect]
     Active Substance: FILGRASTIM
     Dosage: QD
     Route: 041
     Dates: start: 20150314, end: 20150314
  53. ADRIACIN [Suspect]
     Active Substance: DOXORUBICIN HYDROCHLORIDE
     Route: 051
     Dates: end: 20150331
  54. ADRIACIN [Suspect]
     Active Substance: DOXORUBICIN HYDROCHLORIDE
     Route: 051
     Dates: end: 20150331
  55. PREDNISOLONE. [Suspect]
     Active Substance: PREDNISOLONE
     Dosage: QD
     Route: 048
     Dates: start: 20150217, end: 20150217
  56. VINDESINE SULFATE [Suspect]
     Active Substance: VINDESINE SULFATE
     Route: 065
     Dates: start: 20150318, end: 20150320

REACTIONS (2)
  - Drug resistance [Unknown]
  - Bone marrow failure [Recovering/Resolving]

NARRATIVE: CASE EVENT DATE: 20150223
